FAERS Safety Report 24968926 (Version 1)
Quarter: 2025Q1

REPORT INFORMATION
  Report Type: Report from Study
  Country: US (occurrence: US)
  Receive Date: 20250214
  Receipt Date: 20250214
  Transmission Date: 20250409
  Serious: No
  Sender: AMNEAL
  Company Number: US-AMNEAL PHARMACEUTICALS-2024-AMRX-03713

PATIENT
  Sex: Female

DRUGS (7)
  1. CARBIDOPA\LEVODOPA [Suspect]
     Active Substance: CARBIDOPA\LEVODOPA
     Indication: Product used for unknown indication
     Dosage: (23.75MG-95MG) TAKING THREE CAPSULES BY MOUTH THREE TIMES DAILY
     Route: 048
  2. CARBIDOPA\LEVODOPA [Suspect]
     Active Substance: CARBIDOPA\LEVODOPA
     Dosage: (23.75MG-95MG) TAKING FOUR CAPSULES BY MOUTH FOUR TIMES DAILY
     Route: 048
     Dates: start: 20221219
  3. CARBIDOPA\LEVODOPA [Suspect]
     Active Substance: CARBIDOPA\LEVODOPA
     Dosage: (36.25-145MG) TAKING THREE CAPSULES BY MOUTH THREE TIMES A DAY
     Route: 048
     Dates: start: 20230510
  4. CARBIDOPA\LEVODOPA [Suspect]
     Active Substance: CARBIDOPA\LEVODOPA
     Dosage: (36.25-145MG) TAKING FOUR CAPSULES THREE TIMES DAILY
     Route: 048
     Dates: start: 20230803
  5. CARBIDOPA\LEVODOPA [Suspect]
     Active Substance: CARBIDOPA\LEVODOPA
     Dosage: (36.25-145MG) TAKING THREE CAPSULES BY MOUTH FOUR TIMES A DAY
     Route: 048
  6. CARBIDOPA\LEVODOPA [Suspect]
     Active Substance: CARBIDOPA\LEVODOPA
     Dosage: (36.25-145MG) TAKING FOUR CAPSULES BY MOUTH FOUR TIMES A DAY
     Route: 048
     Dates: start: 20240201
  7. CARBIDOPA\LEVODOPA [Suspect]
     Active Substance: CARBIDOPA\LEVODOPA
     Dosage: (36.25-145MG), 4 CAPSULES, 3 /DAY
     Route: 048

REACTIONS (2)
  - Tremor [Unknown]
  - Treatment noncompliance [Unknown]
